FAERS Safety Report 10618689 (Version 2)
Quarter: 2014Q4

REPORT INFORMATION
  Report Type: Spontaneous
  Country: AR (occurrence: AR)
  Receive Date: 20141202
  Receipt Date: 20141215
  Transmission Date: 20150529
  Serious: Yes (Other)
  Sender: FDA-Public Use
  Company Number: PHHY2014AR156889

PATIENT
  Age: 72 Year
  Sex: Female

DRUGS (2)
  1. DIOVAN [Suspect]
     Active Substance: VALSARTAN
     Dosage: 2 DF(160 MG), QD (DAILY)
     Route: 065
  2. DIOVAN [Suspect]
     Active Substance: VALSARTAN
     Indication: HYPERTENSION
     Dosage: 1 DF (320 UNITS NOT REPORTED), QD
     Route: 048
     Dates: end: 20141124

REACTIONS (9)
  - Blood pressure fluctuation [Unknown]
  - Hepatitis [Unknown]
  - Gastrointestinal disorder [Unknown]
  - Hypoaesthesia eye [Recovered/Resolved]
  - Hypertension [Recovering/Resolving]
  - Emotional disorder [Recovering/Resolving]
  - Colitis [Recovered/Resolved]
  - Hypoaesthesia oral [Recovered/Resolved]
  - Nervousness [Recovering/Resolving]

NARRATIVE: CASE EVENT DATE: 2013
